FAERS Safety Report 16666797 (Version 2)
Quarter: 2019Q3

REPORT INFORMATION
  Report Type: Spontaneous
  Country: FR (occurrence: FR)
  Receive Date: 20190805
  Receipt Date: 20190812
  Transmission Date: 20191004
  Serious: Yes (Congenital Anomaly)
  Sender: FDA-Public Use
  Company Number: FR-UCBSA-2019031753

PATIENT
  Sex: Female

DRUGS (3)
  1. KEPPRA [Suspect]
     Active Substance: LEVETIRACETAM
     Indication: PRODUCT USED FOR UNKNOWN INDICATION
     Dosage: 1000 MILLIGRAM, 2X/DAY (BID)
     Route: 064
     Dates: start: 200606, end: 2014
  2. DEPAKINE [VALPROIC ACID] [Suspect]
     Active Substance: VALPROIC ACID
     Indication: PRODUCT USED FOR UNKNOWN INDICATION
     Dosage: 1000 MILLIGRAM, 2X/DAY (BID)
     Route: 064
     Dates: start: 20050829
  3. SPECIAFOLDINE [Suspect]
     Active Substance: FOLIC ACID
     Indication: PROPHYLAXIS OF NEURAL TUBE DEFECT
     Dosage: 15MG DAILY
     Route: 064

REACTIONS (3)
  - Maternal exposure before pregnancy [Unknown]
  - Strabismus congenital [Recovered/Resolved]
  - Cataract congenital [Recovered/Resolved]

NARRATIVE: CASE EVENT DATE: 20140605
